FAERS Safety Report 6246675-6 (Version None)
Quarter: 2009Q2

REPORT INFORMATION
  Report Type: 
  Country: None (occurrence: None)
  Receive Date: 20090624
  Receipt Date: 20090624
  Transmission Date: 20091009
  Serious: No
  Sender: FDA-Public Use
  Company Number: None

PATIENT
  Age: 60 Year
  Sex: Male
  Weight: 119.5 kg

DRUGS (1)
  1. LAMISIL [Suspect]

REACTIONS (2)
  - BLISTER [None]
  - RASH ERYTHEMATOUS [None]
